FAERS Safety Report 22093544 (Version 2)
Quarter: 2023Q4

REPORT INFORMATION
  Report Type: Other
  Country: DE (occurrence: None)
  Receive Date: 20230314
  Receipt Date: 20231016
  Transmission Date: 20240109
  Serious: No
  Sender: FDA-Public Use
  Company Number: DE-ROCHE-2722531

PATIENT
  Sex: Female

DRUGS (7)
  1. OCREVUS [Suspect]
     Active Substance: OCRELIZUMAB
     Indication: Relapsing-remitting multiple sclerosis
     Route: 042
     Dates: start: 20190315
  2. OCREVUS [Suspect]
     Active Substance: OCRELIZUMAB
     Route: 042
     Dates: start: 20200420
  3. OCREVUS [Suspect]
     Active Substance: OCRELIZUMAB
     Dosage: 4TH MAINTENANCE DOSE
     Route: 042
     Dates: start: 20210426
  4. OCREVUS [Suspect]
     Active Substance: OCRELIZUMAB
     Dosage: 6TH MAINTENANCE DOSE
     Route: 042
     Dates: start: 20220425
  5. OCREVUS [Suspect]
     Active Substance: OCRELIZUMAB
     Dosage: 7TH MAINTENANCE DOSE
     Route: 042
     Dates: start: 202210
  6. OCREVUS [Suspect]
     Active Substance: OCRELIZUMAB
     Dosage: 8TH MAINTENANCE DOSE
     Route: 042
     Dates: start: 20230419
  7. NABIXIMOLS [Concomitant]
     Active Substance: NABIXIMOLS

REACTIONS (8)
  - Muscle spasticity [Not Recovered/Not Resolved]
  - Hot flush [Recovered/Resolved]
  - Apathy [Recovered/Resolved]
  - Nausea [Recovered/Resolved]
  - Coronavirus infection [Recovered/Resolved]
  - Pain in extremity [Recovered/Resolved]
  - Fatigue [Recovered/Resolved]
  - Vitiligo [Not Recovered/Not Resolved]

NARRATIVE: CASE EVENT DATE: 20200901
